FAERS Safety Report 8021249-5 (Version None)
Quarter: 2012Q1

REPORT INFORMATION
  Report Type: 
  Country: None (occurrence: None)
  Receive Date: 20120104
  Receipt Date: 20111229
  Transmission Date: 20120608
  Serious: Yes (Other)
  Sender: FDA-Public Use
  Company Number: DE-JNJFOC-20111208396

PATIENT
  Age: 65 Year
  Sex: Female
  Weight: 72 kg

DRUGS (15)
  1. LEVOTHYROXINE SODIUM [Concomitant]
  2. ESCITALOPRAM [Concomitant]
  3. TORSEMIDE [Concomitant]
  4. AMIODARONE HCL [Concomitant]
  5. THYBON [Concomitant]
  6. ALVESCO [Concomitant]
  7. ESIDRIX [Concomitant]
  8. NEXIUM [Concomitant]
  9. NEBIVOLOL HCL [Concomitant]
  10. PROGYNOVA [Concomitant]
  11. SPIRIVA [Concomitant]
  12. SAB SIMPLEX [Concomitant]
  13. XARELTO [Suspect]
     Indication: OFF LABEL USE
     Route: 065
  14. INSPRA [Concomitant]
  15. PROCORALAN [Concomitant]

REACTIONS (4)
  - LEUKOCYTOCLASTIC VASCULITIS [None]
  - CLOSTRIDIAL INFECTION [None]
  - DRUG ERUPTION [None]
  - HAEMATURIA [None]
